FAERS Safety Report 8827634 (Version 1)
Quarter: 2012Q4

REPORT INFORMATION
  Report Type: 
  Country: BR (occurrence: BR)
  Receive Date: 20121005
  Receipt Date: 20121005
  Transmission Date: 20130627
  Serious: Yes (Hospitalization, Other)
  Sender: FDA-Public Use
  Company Number: PHHY2012BR086281

PATIENT
  Age: 90 Year
  Sex: Male

DRUGS (4)
  1. DIOVAN HCT [Suspect]
     Indication: HYPERTENSION
     Dosage: 1 tablet (160/12.5 mg), daily
     Route: 048
  2. DIOVAN HCT [Suspect]
     Dosage: 1 tablet (80/12.5 mg), daily
     Route: 048
     Dates: start: 20120910
  3. DIOVAN HCT [Suspect]
     Dosage: 2 tablet (80/12.5 mg), daily
     Route: 048
  4. DIOVAN HCT [Suspect]
     Dosage: 1 tablet (160/12.5 mg), daily
     Route: 048

REACTIONS (5)
  - Limb discomfort [Recovered/Resolved]
  - Diarrhoea [Recovered/Resolved]
  - Viral infection [Recovered/Resolved]
  - Blood pressure increased [Recovered/Resolved]
  - Drug prescribing error [Recovered/Resolved]
